FAERS Safety Report 13986391 (Version 1)
Quarter: 2017Q3

REPORT INFORMATION
  Report Type: Spontaneous
  Country: ES (occurrence: ES)
  Receive Date: 20170919
  Receipt Date: 20170919
  Transmission Date: 20171128
  Serious: Yes (Other)
  Sender: FDA-Public Use
  Company Number: ES-AUROBINDO-AUR-APL-2017-40605

PATIENT
  Age: 67 Year
  Sex: Male

DRUGS (1)
  1. ZOLEDRONIC ACID [Suspect]
     Active Substance: ZOLEDRONIC ACID
     Indication: BONE PAIN

REACTIONS (2)
  - Optic neuropathy [Recovered/Resolved with Sequelae]
  - Toxicity to various agents [Recovered/Resolved with Sequelae]
